FAERS Safety Report 9669092 (Version 1)
Quarter: 2013Q4

REPORT INFORMATION
  Report Type: Spontaneous
  Country: US (occurrence: US)
  Receive Date: 20131105
  Receipt Date: 20131105
  Transmission Date: 20140711
  Serious: No
  Sender: FDA-Public Use
  Company Number: US-009507513-1311USA000585

PATIENT
  Sex: Female

DRUGS (1)
  1. JANUMET XR [Suspect]
     Dosage: UNKNOWN
     Route: 048

REACTIONS (2)
  - Medication residue present [Unknown]
  - Product quality issue [Unknown]
